FAERS Safety Report 9327104 (Version 1)
Quarter: 2013Q2

REPORT INFORMATION
  Report Type: Spontaneous
  Country: US (occurrence: None)
  Receive Date: 20130530
  Receipt Date: 20130530
  Transmission Date: 20140414
  Serious: Yes (Other)
  Sender: FDA-Public Use
  Company Number: E2B_0000859

PATIENT
  Sex: Female

DRUGS (1)
  1. AMLODIPINE BESILATE [Suspect]
     Indication: PRODUCT USED FOR UNKNOWN INDICATION
     Dosage: 5 MG (5 MG, 1 IN 1 D), PER ORAL
     Route: 048

REACTIONS (1)
  - Coeliac disease [None]
